FAERS Safety Report 9518581 (Version 1)
Quarter: 2013Q1

REPORT INFORMATION
  Report Type: Spontaneous
  Country: US (occurrence: None)
  Receive Date: 20130305
  Receipt Date: 20130305
  Transmission Date: 20140127
  Serious: Yes (Hospitalization)
  Sender: FDA-Public Use
  Company Number: 163-21880-11123596

PATIENT
  Age: 60 Year
  Sex: Male
  Weight: 98.88 kg

DRUGS (11)
  1. REVLIMID [Suspect]
     Indication: MYELODYSPLASTIC SYNDROME
     Dosage: 10M MG, DAILY FOR 28 DAYS, PO
     Route: 048
     Dates: start: 201111
  2. CALCIUM (CALCIUM0 [Concomitant]
  3. FISH OIL (FISH OIL) [Concomitant]
  4. IRON (IRON) [Concomitant]
  5. VITAMINS [Concomitant]
  6. OSTEO BI-FLEX (OSTEO BI-FLEX) [Concomitant]
  7. OXYCODONE (OXYCODONE) [Concomitant]
  8. PRAVASTATIN (PRAVASTATIN) [Concomitant]
  9. RANITIDINE (RANITIFDINE) [Concomitant]
  10. SPIRONOLACTONE (SPIRONOLACTONE) [Concomitant]
  11. TRAMADOL (TRAMADOL) [Concomitant]

REACTIONS (2)
  - Appendicitis [None]
  - Myocardial infarction [None]
